FAERS Safety Report 8610621-8 (Version None)
Quarter: 2012Q3

REPORT INFORMATION
  Report Type: 
  Country: None (occurrence: None)
  Receive Date: 20120808
  Receipt Date: 20120723
  Transmission Date: 20120928
  Serious: No
  Sender: FDA-Public Use
  Company Number: JPI-P-021903

PATIENT
  Age: 62 Year
  Sex: Female
  Weight: 77.1115 kg

DRUGS (12)
  1. MONTELUKAST SODIUM [Concomitant]
  2. VALSARTAN [Concomitant]
  3. VITAMIN D [Concomitant]
  4. AMPHETAMINE, DEXOTRAMPHETAMINE MIXED SALTS [Concomitant]
  5. VENLAFAXINE HCL [Concomitant]
  6. VENLAFAXINE HYDROCHLORIDE EXTENDED RELEASE [Concomitant]
  7. XYREM [Suspect]
     Indication: NARCOLEPSY
     Dosage: ORAL ; ORAL ; ORAL ; (3.0 GM 1ST DOSE/2.25 GM 2ND DOSE),ORAL
     Route: 048
     Dates: start: 20120201, end: 20120201
  8. XYREM [Suspect]
     Indication: NARCOLEPSY
     Dosage: ORAL ; ORAL ; ORAL ; (3.0 GM 1ST DOSE/2.25 GM 2ND DOSE),ORAL
     Route: 048
     Dates: start: 20071201, end: 20101201
  9. XYREM [Suspect]
     Indication: NARCOLEPSY
     Dosage: ORAL ; ORAL ; ORAL ; (3.0 GM 1ST DOSE/2.25 GM 2ND DOSE),ORAL
     Route: 048
     Dates: start: 20120516
  10. XYREM [Suspect]
     Indication: NARCOLEPSY
     Dosage: ORAL ; ORAL ; ORAL ; (3.0 GM 1ST DOSE/2.25 GM 2ND DOSE),ORAL
     Route: 048
     Dates: start: 20120301, end: 20120515
  11. BUPROPION HYDROCHLORIDE [Concomitant]
  12. HYDROCHLOROTHIAZIDE [Concomitant]

REACTIONS (11)
  - UNRESPONSIVE TO STIMULI [None]
  - OXYGEN SATURATION DECREASED [None]
  - NASOPHARYNGITIS [None]
  - JOINT SWELLING [None]
  - OEDEMA PERIPHERAL [None]
  - NASAL CONGESTION [None]
  - BLOOD POTASSIUM DECREASED [None]
  - MYOSITIS [None]
  - MIDDLE INSOMNIA [None]
  - INSOMNIA [None]
  - SOMNOLENCE [None]
